FAERS Safety Report 18706449 (Version 1)
Quarter: 2021Q1

REPORT INFORMATION
  Report Type: Spontaneous
  Country: IT (occurrence: IT)
  Receive Date: 20210106
  Receipt Date: 20210106
  Transmission Date: 20210419
  Serious: Yes (Other)
  Sender: FDA-Public Use
  Company Number: IT-LUPIN PHARMACEUTICALS INC.-2020-11706

PATIENT
  Age: 67 Year
  Sex: Female

DRUGS (4)
  1. BOSENTAN. [Suspect]
     Active Substance: BOSENTAN
     Indication: SCLERODERMA
     Dosage: UNK
     Route: 065
  2. PROSTACYCLIN [Concomitant]
     Active Substance: EPOPROSTENOL
     Indication: SCLERODERMA
     Dosage: UNK
     Route: 065
  3. TOCILIZUMAB. [Concomitant]
     Active Substance: TOCILIZUMAB
     Indication: SCLERODERMA
     Dosage: UNK
     Route: 065
     Dates: start: 201905
  4. SILDENAFIL. [Suspect]
     Active Substance: SILDENAFIL
     Indication: SCLERODERMA
     Dosage: UNK
     Route: 065

REACTIONS (2)
  - Off label use [None]
  - Drug ineffective [Unknown]
